FAERS Safety Report 12198099 (Version 2)
Quarter: 2016Q2

REPORT INFORMATION
  Report Type: Spontaneous
  Country: US (occurrence: US)
  Receive Date: 20160322
  Receipt Date: 20160401
  Transmission Date: 20160815
  Serious: Yes (Other)
  Sender: FDA-Public Use
  Company Number: US-DRREDDYS-USA/USA/16/0077969

PATIENT
  Sex: Female

DRUGS (3)
  1. ZENATANE [Suspect]
     Active Substance: ISOTRETINOIN
     Indication: ACNE
     Route: 065
     Dates: start: 20160209, end: 20160310
  2. ZENATANE [Suspect]
     Active Substance: ISOTRETINOIN
     Indication: ACNE
  3. ZENATANE [Suspect]
     Active Substance: ISOTRETINOIN
     Indication: PAPULE

REACTIONS (2)
  - Headache [Not Recovered/Not Resolved]
  - Mass [Unknown]
